FAERS Safety Report 5385990-5 (Version None)
Quarter: 2007Q3

REPORT INFORMATION
  Report Type: 
  Country: None (occurrence: None)
  Receive Date: 20070709
  Receipt Date: 20070626
  Transmission Date: 20080115
  Serious: Yes (Life-Threatening, Hospitalization)
  Sender: FDA-Public Use
  Company Number: 158046ISR

PATIENT
  Age: 19 Year
  Sex: Male

DRUGS (2)
  1. ETOPOSIDE [Suspect]
     Indication: MEDULLOBLASTOMA
     Dosage: 100 MG/M2 INTRAVENOUS (NOT OTHERWISE SPECIFIED)
     Route: 042
     Dates: start: 20060407, end: 20060601
  2. CARBOPLATIN [Suspect]
     Indication: MEDULLOBLASTOMA
     Dosage: 200 MG/M2 INTRAVENOUS (NOT OTHERWISE SPECIFIED)
     Route: 042
     Dates: start: 20060407, end: 20060601

REACTIONS (7)
  - CHILLS [None]
  - CIRCULATORY COLLAPSE [None]
  - HEADACHE [None]
  - HYPERSENSITIVITY [None]
  - NAUSEA [None]
  - SEPTIC SHOCK [None]
  - VOMITING [None]
